FAERS Safety Report 13988826 (Version 2)
Quarter: 2017Q3

REPORT INFORMATION
  Report Type: Spontaneous
  Country: US (occurrence: US)
  Receive Date: 20170919
  Receipt Date: 20170926
  Transmission Date: 20171128
  Serious: Yes (Hospitalization, Other)
  Sender: FDA-Public Use
  Company Number: US-IMPAX LABORATORIES, INC-2017-IPXL-02708

PATIENT
  Sex: Female
  Weight: 4.23 kg

DRUGS (7)
  1. HEPARIN [Concomitant]
     Active Substance: HEPARIN SODIUM
     Indication: PRODUCT USED FOR UNKNOWN INDICATION
     Dosage: UNK
     Route: 064
  2. BACLOFEN. [Suspect]
     Active Substance: BACLOFEN
     Indication: DRUG WITHDRAWAL SYNDROME
     Dosage: UNK
     Route: 064
  3. BACLOFEN. [Suspect]
     Active Substance: BACLOFEN
     Indication: FOETAL EXPOSURE DURING PREGNANCY
     Dosage: 0.05 MG/KG/DOSE FOUR TIMES DAILY
     Route: 048
  4. GABAPENTIN. [Concomitant]
     Active Substance: GABAPENTIN
     Indication: PRODUCT USED FOR UNKNOWN INDICATION
     Dosage: UNK
     Route: 064
  5. TRAZODONE [Concomitant]
     Active Substance: TRAZODONE HYDROCHLORIDE
     Indication: PRODUCT USED FOR UNKNOWN INDICATION
     Dosage: UNK
     Route: 064
  6. TIZANIDINE. [Concomitant]
     Active Substance: TIZANIDINE
     Indication: PRODUCT USED FOR UNKNOWN INDICATION
     Dosage: UNK
     Route: 064
  7. BACLOFEN. [Suspect]
     Active Substance: BACLOFEN
     Dosage: UNK, TAPERING OF THE BACLOFEN
     Route: 048

REACTIONS (10)
  - Tremor neonatal [Recovered/Resolved]
  - Faeces discoloured [Recovered/Resolved]
  - Hypertonia [Recovered/Resolved]
  - Sneezing [Recovered/Resolved]
  - Foetal exposure during pregnancy [Unknown]
  - Large for dates baby [Recovered/Resolved]
  - Diarrhoea [Recovered/Resolved]
  - Drug withdrawal syndrome [Recovered/Resolved]
  - Selective eating disorder [Recovered/Resolved]
  - Congenital choroid plexus cyst [Recovered/Resolved]
